FAERS Safety Report 4758141-5 (Version None)
Quarter: 2005Q3

REPORT INFORMATION
  Report Type: 
  Country: None (occurrence: None)
  Receive Date: 20050831
  Receipt Date: 20050816
  Transmission Date: 20060218
  Serious: Yes (Life-Threatening, Hospitalization)
  Sender: FDA-Public Use
  Company Number: JP-MERCK-0508USA03292

PATIENT
  Age: 71 Year
  Sex: Female

DRUGS (13)
  1. STROMECTOL [Suspect]
     Indication: ACARODERMATITIS
     Route: 048
     Dates: start: 20050719, end: 20050719
  2. STROMECTOL [Suspect]
     Route: 048
     Dates: start: 20050816, end: 20050816
  3. [THERAPY UNSPECIFIED] [Concomitant]
     Route: 065
  4. EPINASTINE HYDROCHLORIDE [Concomitant]
     Route: 048
     Dates: end: 20050719
  5. PAXIL [Concomitant]
     Route: 048
     Dates: end: 20050719
  6. ALLELOCK [Concomitant]
     Indication: PRURITUS
     Route: 048
     Dates: start: 20050719
  7. CELESTAMINE TAB [Concomitant]
     Indication: PRURITUS
     Route: 048
     Dates: start: 20050719
  8. MOBIC [Suspect]
     Route: 048
  9. FERROMIA [Concomitant]
     Indication: ANAEMIA
     Route: 048
     Dates: start: 20050802
  10. THYRADIN [Concomitant]
     Indication: HYPOTHYROIDISM
     Route: 048
  11. SPIRONOLACTONE [Concomitant]
     Route: 048
     Dates: end: 20050802
  12. FAMOTIDINE [Concomitant]
     Route: 048
  13. STROMECTOL [Suspect]
     Route: 048
     Dates: start: 20050713, end: 20050713

REACTIONS (3)
  - DRUG INEFFECTIVE [None]
  - HYPERKALAEMIA [None]
  - RENAL TUBULAR DISORDER [None]
